FAERS Safety Report 9216259 (Version 3)
Quarter: 2013Q2

REPORT INFORMATION
  Report Type: Spontaneous
  Country: JP (occurrence: JP)
  Receive Date: 20130408
  Receipt Date: 20130520
  Transmission Date: 20140414
  Serious: Yes (Death, Other)
  Sender: FDA-Public Use
  Company Number: JP-UCBSA-082312

PATIENT
  Age: 40 Year
  Sex: 0

DRUGS (3)
  1. E KEPPRA [Suspect]
     Indication: EPILEPSY
     Dosage: DAILY DOSE: 1000 MG
     Route: 048
  2. E KEPPRA [Suspect]
     Indication: EPILEPSY
     Dosage: DAILY DOSE: 2000 MG
     Route: 048
  3. SODIUM VALPROATE [Concomitant]
     Dosage: UNKNOWN DOSE

REACTIONS (2)
  - Tumour haemorrhage [Fatal]
  - Thrombocytopenia [Fatal]
